FAERS Safety Report 8604411-X (Version None)
Quarter: 2012Q3

REPORT INFORMATION
  Report Type: 
  Country: None (occurrence: None)
  Receive Date: 20120820
  Receipt Date: 20120809
  Transmission Date: 20120928
  Serious: Yes (Disabling)
  Sender: FDA-Public Use
  Company Number: BR-US-EMD SERONO, INC.-7128857

PATIENT
  Sex: Female

DRUGS (3)
  1. TYLENOL-500 [Concomitant]
     Indication: PREMEDICATION
  2. VALPROATE SODIUM [Concomitant]
     Indication: PRODUCT USED FOR UNKNOWN INDICATION
  3. REBIF [Suspect]
     Indication: RELAPSING-REMITTING MULTIPLE SCLEROSIS
     Route: 058
     Dates: start: 20041213

REACTIONS (5)
  - URINARY INCONTINENCE [None]
  - ABASIA [None]
  - MUSCLE SPASTICITY [None]
  - ARTHRALGIA [None]
  - SPEECH DISORDER [None]
